FAERS Safety Report 15048853 (Version 2)
Quarter: 2018Q2

REPORT INFORMATION
  Report Type: Spontaneous
  Country: US (occurrence: US)
  Receive Date: 20180622
  Receipt Date: 20180626
  Transmission Date: 20180711
  Serious: No
  Sender: FDA-Public Use
  Company Number: US-PFIZER INC-2018254360

PATIENT
  Age: 90 Year
  Sex: Female
  Weight: 51 kg

DRUGS (2)
  1. LATANOPROST. [Suspect]
     Active Substance: LATANOPROST
     Dosage: 2 GTT, 1X/DAY [DROP IN EACH EYE AT NIGHT AT BEDTIME]
     Dates: start: 20180620
  2. LATANOPROST. [Suspect]
     Active Substance: LATANOPROST
     Indication: GLAUCOMA
     Dosage: UNK [FIRST TIME LAST NIGHT]

REACTIONS (3)
  - Dry eye [Unknown]
  - Eye pain [Recovering/Resolving]
  - Pain [Unknown]

NARRATIVE: CASE EVENT DATE: 20180621
